FAERS Safety Report 5715236-7 (Version None)
Quarter: 2008Q2

REPORT INFORMATION
  Report Type: 
  Country: None (occurrence: None)
  Receive Date: 20080423
  Receipt Date: 20080411
  Transmission Date: 20081010
  Serious: Yes (Hospitalization, Other)
  Sender: FDA-Public Use
  Company Number: US-PFIZER INC-2007089115

PATIENT
  Sex: Male
  Weight: 106 kg

DRUGS (5)
  1. VIAGRA [Suspect]
     Indication: ERECTILE DYSFUNCTION
     Route: 048
  2. ASPIRIN [Concomitant]
     Route: 048
  3. AVALIDE [Concomitant]
     Route: 048
  4. WELLBUTRIN SR [Concomitant]
     Route: 048
  5. PAXIL CR [Concomitant]
     Route: 048

REACTIONS (4)
  - DEEP VEIN THROMBOSIS [None]
  - DEPRESSION [None]
  - HAEMORRHAGIC STROKE [None]
  - HEMIPLEGIA [None]
